FAERS Safety Report 5009701-8 (Version None)
Quarter: 2006Q2

REPORT INFORMATION
  Report Type: 
  Country: None (occurrence: None)
  Receive Date: 20060524
  Receipt Date: 20060517
  Transmission Date: 20061013
  Serious: Yes (Hospitalization)
  Sender: FDA-Public Use
  Company Number: US-JNJFOC-20060504219

PATIENT
  Sex: Female
  Weight: 70.31 kg

DRUGS (3)
  1. DURAGESIC-100 [Suspect]
     Route: 062
  2. VALIUM [Concomitant]
     Indication: ANXIETY
     Route: 048
  3. RESTORIL [Concomitant]
     Indication: INSOMNIA

REACTIONS (1)
  - RECTAL PROLAPSE [None]
